FAERS Safety Report 8849333 (Version 2)
Quarter: 2013Q1

REPORT INFORMATION
  Report Type: Not Available
  Country: FR (occurrence: FR)
  Receive Date: 20121017
  Receipt Date: 20130118
  Transmission Date: 20140127
  Serious: Yes (Hospitalization, Other)
  Sender: FDA-Public Use
  Company Number: FR-NAPPMUNDI-GBR-2012-0011645

PATIENT
  Sex: Female
  Weight: 80 kg

DRUGS (10)
  1. OXYCONTIN LP, COMPRIME PELLICULE A LIBERATION PROLONGEE [Suspect]
     Indication: PRODUCT USED FOR UNKNOWN INDICATION
     Dosage: UNK
     Route: 048
     Dates: end: 201208
  2. LEXOMIL [Interacting]
     Indication: PRODUCT USED FOR UNKNOWN INDICATION
     Route: 048
  3. STILNOX [Interacting]
     Indication: PRODUCT USED FOR UNKNOWN INDICATION
     Dosage: UNK
     Route: 048
     Dates: end: 201208
  4. KARDEGIC [Concomitant]
     Dosage: 75 MG, UNK
  5. TAREG [Concomitant]
     Dosage: 160 MG, UNK
  6. DOLIPRANE [Concomitant]
     Dosage: 1000 MG, UNK
  7. PRAVASTATINE [Concomitant]
     Dosage: 20 MG, UNK
  8. INEXIUM /01479302/ [Concomitant]
     Dosage: 20 MG, UNK
  9. AMLOR [Concomitant]
     Dosage: 5 MG, UNK
  10. PROZAC [Concomitant]
     Dosage: UNK

REACTIONS (3)
  - Drug withdrawal syndrome [Recovered/Resolved]
  - Labelled drug-drug interaction medication error [Recovered/Resolved]
  - Abnormal behaviour [Recovered/Resolved]
